FAERS Safety Report 19401348 (Version 3)
Quarter: 2021Q3

REPORT INFORMATION
  Report Type: Spontaneous
  Country: US (occurrence: US)
  Receive Date: 20210610
  Receipt Date: 20210720
  Transmission Date: 20211014
  Serious: Yes (Other)
  Sender: FDA-Public Use
  Company Number: US-HORIZON THERAPEUTICS-HZN-2021-002923

PATIENT

DRUGS (4)
  1. PREDNISONE. [Concomitant]
     Active Substance: PREDNISONE
     Indication: PRODUCT USED FOR UNKNOWN INDICATION
     Dosage: 80 MG DAILY
     Route: 065
  2. TAPAZOLE [Concomitant]
     Active Substance: METHIMAZOLE
     Indication: PRODUCT USED FOR UNKNOWN INDICATION
     Dosage: 15MG DAILY
     Route: 065
  3. TEPEZZA [Suspect]
     Active Substance: TEPROTUMUMAB-TRBW
     Dosage: 2?8 DOSES 1360MG OVER 90 MINUTES
     Route: 042
     Dates: start: 20210618, end: 20210618
  4. TEPEZZA [Suspect]
     Active Substance: TEPROTUMUMAB-TRBW
     Indication: ENDOCRINE OPHTHALMOPATHY
     Dosage: FIRST DOSE 680 MG IV OVER 90 MINUTES
     Route: 042
     Dates: start: 20210528, end: 20210528

REACTIONS (7)
  - Syncope [Unknown]
  - Ocular discomfort [Unknown]
  - Cardiomegaly [Unknown]
  - Dehydration [Unknown]
  - Loss of consciousness [Recovered/Resolved]
  - Fall [Unknown]
  - Muscle spasms [Unknown]
